FAERS Safety Report 16842440 (Version 1)
Quarter: 2019Q3

REPORT INFORMATION
  Report Type: Spontaneous
  Country: US (occurrence: US)
  Receive Date: 20190731
  Receipt Date: 20190731
  Transmission Date: 20191005
  Serious: Yes (Hospitalization)
  Sender: FDA-Public Use
  Company Number: None

PATIENT
  Age: 72 Year
  Sex: Male
  Weight: 190 kg

DRUGS (4)
  1. 5-FLUUROURACIL (5-FU) [Suspect]
     Active Substance: FLUOROURACIL
     Dates: end: 20190603
  2. ELOXATIN [Suspect]
     Active Substance: OXALIPLATIN
     Dates: end: 20190603
  3. CAMPTOSAR [Suspect]
     Active Substance: IRINOTECAN HYDROCHLORIDE
     Dates: end: 20190603
  4. LEUCOVORIN CALCIUM. [Suspect]
     Active Substance: LEUCOVORIN CALCIUM
     Dates: end: 20190603

REACTIONS (15)
  - Decreased appetite [None]
  - Communication disorder [None]
  - Vomiting [None]
  - Weight decreased [None]
  - Therapy cessation [None]
  - Fatigue [None]
  - Dehydration [None]
  - Cognitive disorder [None]
  - Nausea [None]
  - Diarrhoea [None]
  - Failure to thrive [None]
  - Asthenia [None]
  - Wheelchair user [None]
  - Loss of personal independence in daily activities [None]
  - Haematochezia [None]

NARRATIVE: CASE EVENT DATE: 20190617
